FAERS Safety Report 6940379-X (Version None)
Quarter: 2010Q3

REPORT INFORMATION
  Report Type: 
  Country: None (occurrence: None)
  Receive Date: 20100825
  Receipt Date: 20100813
  Transmission Date: 20110219
  Serious: Yes (Hospitalization)
  Sender: FDA-Public Use
  Company Number: SE-WYE-H16990210

PATIENT
  Age: 78 Year
  Sex: Male

DRUGS (6)
  1. CORDARONE [Suspect]
     Indication: ATRIAL FIBRILLATION
     Route: 065
     Dates: start: 20100413, end: 20100420
  2. WARAN [Concomitant]
     Dosage: DOSE AND FREQUENCY NOT SPECIFIED
     Route: 065
     Dates: end: 20100401
  3. ZOPICLONE [Concomitant]
  4. SPIRONOLACTONE [Concomitant]
     Dosage: DOSE AND FREQUENCY NOT SPECIFIED
     Route: 065
     Dates: start: 20080820
  5. ATACAND [Concomitant]
  6. SIMVASTATIN [Concomitant]

REACTIONS (2)
  - RENAL FAILURE ACUTE [None]
  - TUBULOINTERSTITIAL NEPHRITIS [None]
